FAERS Safety Report 5309473-3 (Version None)
Quarter: 2007Q2

REPORT INFORMATION
  Report Type: 
  Country: None (occurrence: None)
  Receive Date: 20070427
  Receipt Date: 20070418
  Transmission Date: 20071010
  Serious: Yes (Other)
  Sender: FDA-Public Use
  Company Number: PHBS2007EC07023

PATIENT
  Age: 5 Year
  Sex: Female

DRUGS (1)
  1. ZADITEN [Suspect]
     Indication: CONJUNCTIVITIS ALLERGIC
     Dosage: 1 DRP, TID
     Dates: start: 20070413, end: 20070417

REACTIONS (1)
  - CONJUNCTIVAL HAEMORRHAGE [None]
